FAERS Safety Report 13938997 (Version 1)
Quarter: 2017Q3

REPORT INFORMATION
  Report Type: Spontaneous
  Country: US (occurrence: None)
  Receive Date: 20170906
  Receipt Date: 20170906
  Transmission Date: 20171127
  Serious: No
  Sender: FDA-Public Use
  Company Number: None

PATIENT
  Age: 47 Year
  Sex: Male
  Weight: 87.1 kg

DRUGS (3)
  1. ETOPOSIDE (VP-16) [Suspect]
     Active Substance: ETOPOSIDE
     Dates: end: 20170829
  2. DAUNORUBICIN [Suspect]
     Active Substance: DAUNORUBICIN
     Dates: end: 20170824
  3. CYTARABINE. [Suspect]
     Active Substance: CYTARABINE
     Dates: end: 20170824

REACTIONS (7)
  - Troponin increased [None]
  - Cardiac arrest [None]
  - Myocarditis [None]
  - Hypokinesia [None]
  - Unresponsive to stimuli [None]
  - Acute respiratory distress syndrome [None]
  - Chest pain [None]

NARRATIVE: CASE EVENT DATE: 20170829
